FAERS Safety Report 4988973-X (Version None)
Quarter: 2006Q1

REPORT INFORMATION
  Report Type: 
  Country: None (occurrence: None)
  Receive Date: 20060314
  Receipt Date: 20051109
  Transmission Date: 20060701
  Serious: Yes (Other)
  Sender: FDA-Public Use
  Company Number: 200513561BCC

PATIENT
  Age: 68 Year
  Sex: Female
  Weight: 70.3075 kg

DRUGS (7)
  1. ALEVE [Suspect]
     Indication: MYALGIA
     Dosage: 440 MG, BID, ORAL
     Route: 048
     Dates: start: 20050823, end: 20050902
  2. ALEVE [Suspect]
     Indication: TENDONITIS
     Dosage: 440 MG, BID, ORAL
     Route: 048
     Dates: start: 20050823, end: 20050902
  3. ASPIRIN [Suspect]
     Dosage: ORAL
     Route: 048
  4. VITAMINS [Concomitant]
  5. ACEBUTOLOL [Concomitant]
  6. CALCIUM GLUCONATE [Concomitant]
  7. OMEGA 3 [Concomitant]

REACTIONS (2)
  - ABDOMINAL PAIN [None]
  - HAEMATOCHEZIA [None]
